FAERS Safety Report 21738684 (Version 1)
Quarter: 2022Q4

REPORT INFORMATION
  Report Type: Spontaneous
  Country: US (occurrence: US)
  Receive Date: 20221216
  Receipt Date: 20221216
  Transmission Date: 20230113
  Serious: No
  Sender: FDA-Public Use
  Company Number: US-ENDO PHARMACEUTICALS INC-2022-000744

PATIENT
  Sex: Male
  Weight: 104.31 kg

DRUGS (8)
  1. XIAFLEX [Suspect]
     Active Substance: COLLAGENASE CLOSTRIDIUM HISTOLYTICUM
     Indication: Peyronie^s disease
     Dosage: UNK UNKNOWN, UNKNOWN (CYCLE ONE, INJECTION ONE)
     Route: 065
     Dates: start: 202103
  2. XIAFLEX [Suspect]
     Active Substance: COLLAGENASE CLOSTRIDIUM HISTOLYTICUM
     Dosage: UNK UNKNOWN, UNKNOWN (CYCLE ONE, INJECTION TWO)
     Route: 065
     Dates: start: 202103
  3. XIAFLEX [Suspect]
     Active Substance: COLLAGENASE CLOSTRIDIUM HISTOLYTICUM
     Dosage: UNK UNKNOWN, UNKNOWN (CYCLE TWO, INJECTION ONE)
     Route: 065
     Dates: start: 202107
  4. XIAFLEX [Suspect]
     Active Substance: COLLAGENASE CLOSTRIDIUM HISTOLYTICUM
     Dosage: UNK UNKNOWN, UNKNOWN (CYCLE TWO, INJECTION TWO)
     Route: 065
     Dates: start: 202107
  5. XIAFLEX [Suspect]
     Active Substance: COLLAGENASE CLOSTRIDIUM HISTOLYTICUM
     Dosage: UNK UNKNOWN, UNKNOWN (CYCLE THREE, INJECTION ONE)
     Route: 065
     Dates: start: 20220125
  6. XIAFLEX [Suspect]
     Active Substance: COLLAGENASE CLOSTRIDIUM HISTOLYTICUM
     Dosage: UNK UNKNOWN, UNKNOWN (CYCLE THREE, INJECTION TWO)
     Route: 065
     Dates: start: 20220128
  7. STATIN                             /00036501/ [Concomitant]
     Indication: Cardiovascular disorder
     Dosage: UNK UNKNOWN, UNKNOWN
     Route: 065
  8. UNSPECIFIED INGREDIENT [Concomitant]
     Active Substance: UNSPECIFIED INGREDIENT
     Indication: Cardiovascular disorder
     Dosage: UNK UNKNOWN, UNKNOWN
     Route: 065

REACTIONS (10)
  - Venous haemorrhage [Unknown]
  - Discomfort [Recovered/Resolved]
  - Abdominal distension [Unknown]
  - Burning sensation [Recovered/Resolved]
  - Scrotal haematoma [Unknown]
  - Genital swelling [Unknown]
  - Penile pain [Not Recovered/Not Resolved]
  - Penile haematoma [Recovering/Resolving]
  - Penile contusion [Unknown]
  - Off label use [Not Recovered/Not Resolved]

NARRATIVE: CASE EVENT DATE: 20210101
